FAERS Safety Report 16421730 (Version 1)
Quarter: 2019Q2

REPORT INFORMATION
  Report Type: Spontaneous
  Country: CH (occurrence: CH)
  Receive Date: 20190612
  Receipt Date: 20190612
  Transmission Date: 20190711
  Serious: Yes (Hospitalization, Other)
  Sender: FDA-Public Use
  Company Number: PHHY2019CH131929

PATIENT
  Age: 47 Year
  Sex: Female

DRUGS (4)
  1. ZOLPIDEM [Suspect]
     Active Substance: ZOLPIDEM\ZOLPIDEM TARTRATE
     Dosage: 70 MG, QD
     Route: 065
  2. ZOLPIDEM [Suspect]
     Active Substance: ZOLPIDEM\ZOLPIDEM TARTRATE
     Indication: INSOMNIA
     Dosage: 10 MG, QD
     Route: 065
     Dates: start: 2014, end: 2017
  3. ZOLPIDEM [Suspect]
     Active Substance: ZOLPIDEM\ZOLPIDEM TARTRATE
     Dosage: 160 MG, UNK
     Route: 065
  4. ZOLPIDEM [Suspect]
     Active Substance: ZOLPIDEM\ZOLPIDEM TARTRATE
     Dosage: 25 MG, QD
     Route: 065

REACTIONS (9)
  - Product use issue [Unknown]
  - Behaviour disorder [Recovered/Resolved]
  - Drug abuse [Recovered/Resolved]
  - Mania [Recovered/Resolved]
  - Drug dependence [Recovered/Resolved]
  - Withdrawal syndrome [Recovered/Resolved]
  - Frontotemporal dementia [Recovered/Resolved]
  - Personality disorder [Recovered/Resolved]
  - Drug tolerance [Unknown]
